FAERS Safety Report 4300003-1 (Version None)
Quarter: 2004Q1

REPORT INFORMATION
  Report Type: 
  Country: None (occurrence: None)
  Receive Date: 20040219
  Receipt Date: 20040219
  Transmission Date: 20041129
  Serious: Yes (Hospitalization)
  Sender: FDA-Public Use
  Company Number: None

PATIENT
  Age: 57 Year
  Sex: Male
  Weight: 81.6475 kg

DRUGS (9)
  1. GLYBURIDE [Suspect]
     Indication: DIABETES MELLITUS
     Dosage: 1 PO BID AC
     Route: 048
  2. ALLOPURINOL [Concomitant]
  3. ATENOLOL [Concomitant]
  4. CITALOPRAM [Concomitant]
  5. FENOFIBRATE [Concomitant]
  6. TRIAMTERENE AND HYDROCHLOROTHIAZIDE [Concomitant]
  7. IRBESARTAN [Concomitant]
  8. NIACIN [Concomitant]
  9. TEMAZEPAM [Concomitant]

REACTIONS (5)
  - ASTHENIA [None]
  - BLOOD GLUCOSE DECREASED [None]
  - CONFUSIONAL STATE [None]
  - DIZZINESS [None]
  - LETHARGY [None]
